FAERS Safety Report 7081786-7 (Version None)
Quarter: 2010Q4

REPORT INFORMATION
  Report Type: 
  Country: None (occurrence: None)
  Receive Date: 20101103
  Receipt Date: 20101026
  Transmission Date: 20110411
  Serious: Yes (Death)
  Sender: FDA-Public Use
  Company Number: US-CELGENEUS-163-21880-10100341

PATIENT
  Sex: Female

DRUGS (6)
  1. REVLIMID [Suspect]
     Indication: MULTIPLE MYELOMA
     Route: 048
     Dates: start: 20080601
  2. REVLIMID [Suspect]
     Route: 048
     Dates: start: 20100201, end: 20100101
  3. LEXAPRO [Concomitant]
     Route: 065
  4. COUMADIN [Concomitant]
     Route: 065
  5. LASIX [Concomitant]
     Route: 065
  6. PRILOSEC [Concomitant]
     Route: 065

REACTIONS (3)
  - INFECTION [None]
  - MULTIPLE MYELOMA [None]
  - RENAL FAILURE [None]
